FAERS Safety Report 12398086 (Version 1)
Quarter: 2016Q2

REPORT INFORMATION
  Report Type: Spontaneous
  Country: US (occurrence: None)
  Receive Date: 20160523
  Receipt Date: 20160523
  Transmission Date: 20160815
  Serious: Yes (Hospitalization)
  Sender: FDA-Public Use
  Company Number: None

PATIENT
  Age: 66 Year
  Sex: Female

DRUGS (7)
  1. NADOLOL. [Concomitant]
     Active Substance: NADOLOL
  2. OMEPRAZOLE. [Concomitant]
     Active Substance: OMEPRAZOLE
  3. HYDROCHLOROTHIAZIDE. [Suspect]
     Active Substance: HYDROCHLOROTHIAZIDE
     Indication: HYPERTENSION
     Route: 048
     Dates: start: 20160306, end: 20160402
  4. SPIRONOLACTONE. [Suspect]
     Active Substance: SPIRONOLACTONE
     Route: 048
  5. AMLODIPINE [Concomitant]
     Active Substance: AMLODIPINE BESYLATE
  6. COMPAZINE [Concomitant]
     Active Substance: PROCHLORPERAZINE MALEATE
  7. RIFAXIMIN [Concomitant]
     Active Substance: RIFAXIMIN

REACTIONS (5)
  - Mental status changes [None]
  - Hepatic function abnormal [None]
  - Acute kidney injury [None]
  - Hyponatraemia [None]
  - Post procedural complication [None]

NARRATIVE: CASE EVENT DATE: 20160402
